FAERS Safety Report 7350276-6 (Version None)
Quarter: 2011Q1

REPORT INFORMATION
  Report Type: 
  Country: None (occurrence: None)
  Receive Date: 20110314
  Receipt Date: 20110303
  Transmission Date: 20110831
  Serious: No
  Sender: FDA-Public Use
  Company Number: US-ELI_LILLY_AND_COMPANY-US201103002101

PATIENT
  Sex: Male

DRUGS (3)
  1. CYMBALTA [Suspect]
     Indication: BIPOLAR DISORDER
     Dosage: 30 MG, UNK
  2. GEODON [Concomitant]
     Indication: BIPOLAR DISORDER
     Dosage: 80 MG, 2/D
  3. CYMBALTA [Suspect]
     Dosage: 60 MG, UNK

REACTIONS (2)
  - OFF LABEL USE [None]
  - HEPATIC ENZYME INCREASED [None]
